FAERS Safety Report 7208233-6 (Version None)
Quarter: 2011Q1

REPORT INFORMATION
  Report Type: 
  Country: None (occurrence: None)
  Receive Date: 20110104
  Receipt Date: 20101228
  Transmission Date: 20110831
  Serious: Yes (Other)
  Sender: FDA-Public Use
  Company Number: US-BAYER-2010-000344

PATIENT
  Sex: Female

DRUGS (1)
  1. MIRENA [Suspect]
     Indication: MENSTRUAL CYCLE MANAGEMENT
     Dosage: 20 A?G, CONT
     Route: 015
     Dates: start: 20100818, end: 20101119

REACTIONS (4)
  - ABDOMINAL PAIN [None]
  - NAUSEA [None]
  - OVARIAN CYST [None]
  - VAGINAL HAEMORRHAGE [None]
